FAERS Safety Report 21596019 (Version 1)
Quarter: 2022Q4

REPORT INFORMATION
  Report Type: Spontaneous
  Country: ES (occurrence: ES)
  Receive Date: 20221115
  Receipt Date: 20221115
  Transmission Date: 20230113
  Serious: Yes (Life-Threatening, Hospitalization)
  Sender: FDA-Public Use
  Company Number: None

PATIENT
  Age: 62 Year
  Sex: Female

DRUGS (4)
  1. ARIPIPRAZOLE [Suspect]
     Active Substance: ARIPIPRAZOLE
     Indication: Obsessive-compulsive disorder
     Dosage: 5 MILLIGRAM, QD
     Route: 048
     Dates: start: 20120731, end: 20220714
  2. WAKIX [Suspect]
     Active Substance: PITOLISANT HYDROCHLORIDE
     Indication: Hypersomnia
     Dosage: 4.5 MILLIGRAM,QD,30 TABLETS
     Route: 048
     Dates: start: 20220623, end: 20220714
  3. FLUVOXAMINE MALEATE [Concomitant]
     Active Substance: FLUVOXAMINE MALEATE
     Indication: Obsessive-compulsive disorder
     Dosage: 300 MILLIGRAM, QD, 30 TABLETS
     Route: 048
     Dates: start: 201906
  4. DIAZEPAM [Concomitant]
     Active Substance: DIAZEPAM
     Indication: Obsessive-compulsive disorder
     Dosage: 5 MILLIGRAM, QD
     Route: 048
     Dates: start: 20200518

REACTIONS (1)
  - Pulmonary embolism [Recovered/Resolved]

NARRATIVE: CASE EVENT DATE: 20220707
